FAERS Safety Report 6756749-9 (Version None)
Quarter: 2010Q2

REPORT INFORMATION
  Report Type: 
  Country: None (occurrence: None)
  Receive Date: 20100604
  Receipt Date: 20100531
  Transmission Date: 20101027
  Serious: Yes (Other)
  Sender: FDA-Public Use
  Company Number: ZA-GENZYME-CERZ-1001317

PATIENT

DRUGS (1)
  1. CEREZYME [Suspect]
     Indication: GAUCHER'S DISEASE
     Dosage: 1200 U, Q2W
     Route: 042
     Dates: start: 20050101

REACTIONS (3)
  - ANTI-THYROID ANTIBODY POSITIVE [None]
  - INSULIN RESISTANCE [None]
  - NEUROPATHY PERIPHERAL [None]
